FAERS Safety Report 24322299 (Version 1)
Quarter: 2024Q3

REPORT INFORMATION
  Report Type: Spontaneous
  Country: SE (occurrence: SE)
  Receive Date: 20240916
  Receipt Date: 20240916
  Transmission Date: 20241017
  Serious: No
  Sender: TEVA
  Company Number: SE-TEVA-VS-3237708

PATIENT
  Age: 25 Year
  Sex: Male

DRUGS (1)
  1. ISOTRETINOIN [Suspect]
     Active Substance: ISOTRETINOIN
     Indication: Acne
     Route: 065
     Dates: end: 20210512

REACTIONS (4)
  - Eye pain [Unknown]
  - Keratitis [Unknown]
  - Depression [Unknown]
  - Keratitis [Unknown]

NARRATIVE: CASE EVENT DATE: 20210101
